FAERS Safety Report 10250089 (Version 1)
Quarter: 2014Q2

REPORT INFORMATION
  Report Type: Spontaneous
  Country: CA (occurrence: CA)
  Receive Date: 20140620
  Receipt Date: 20140620
  Transmission Date: 20141212
  Serious: Yes (Other)
  Sender: FDA-Public Use
  Company Number: CA-PFIZER INC-2014167274

PATIENT
  Age: 67 Year
  Sex: Male
  Weight: 91 kg

DRUGS (2)
  1. LIPITOR [Suspect]
     Dosage: 40 MG, 1X/DAY
     Route: 048
  2. SPIRIVA [Concomitant]
     Dosage: UNK

REACTIONS (1)
  - Amnesia [Recovered/Resolved]
